FAERS Safety Report 13427229 (Version 2)
Quarter: 2017Q2

REPORT INFORMATION
  Report Type: Spontaneous
  Country: BR (occurrence: BR)
  Receive Date: 20170411
  Receipt Date: 20170418
  Transmission Date: 20170830
  Serious: Yes (Other)
  Sender: FDA-Public Use
  Company Number: BR-009507513-1704BRA002896

PATIENT
  Sex: Female
  Weight: 62 kg

DRUGS (3)
  1. NUVARING [Suspect]
     Active Substance: ETHINYL ESTRADIOL\ETONOGESTREL
     Dosage: 1 RING,3 WEEKS OF USE AND ONE WEEK OF PAUSE
     Route: 067
     Dates: start: 20170308, end: 20170323
  2. NUVARING [Suspect]
     Active Substance: ETHINYL ESTRADIOL\ETONOGESTREL
     Indication: CONTRACEPTION
     Dosage: 1 RING,3 WEEKS OF USE AND ONE WEEK OF PAUSE
     Route: 067
     Dates: start: 201604, end: 20170308
  3. NUVARING [Suspect]
     Active Substance: ETHINYL ESTRADIOL\ETONOGESTREL
     Dosage: 1 RING,3 WEEKS OF USE AND ONE WEEK OF PAUSE
     Route: 067
     Dates: start: 20170324

REACTIONS (3)
  - Device breakage [Unknown]
  - Incorrect drug administration duration [Unknown]
  - Vulvovaginal injury [Unknown]

NARRATIVE: CASE EVENT DATE: 20170323
